FAERS Safety Report 20103348 (Version 1)
Quarter: 2021Q4

REPORT INFORMATION
  Report Type: Other
  Country: US (occurrence: US)
  Receive Date: 20211123
  Receipt Date: 20211123
  Transmission Date: 20220303
  Serious: No
  Sender: FDA-Public Use
  Company Number: US-UROVANT SCIENCES GMBH-202107-URV-000329

PATIENT
  Age: 88 Year
  Sex: Female

DRUGS (1)
  1. GEMTESA [Suspect]
     Active Substance: VIBEGRON
     Indication: Nocturia
     Dosage: 75 MG, QD
     Route: 048

REACTIONS (1)
  - Drug ineffective [Unknown]
